FAERS Safety Report 8542888-9 (Version None)
Quarter: 2012Q3

REPORT INFORMATION
  Report Type: 
  Country: None (occurrence: None)
  Receive Date: 20120727
  Receipt Date: 20120713
  Transmission Date: 20120928
  Serious: Yes (Other)
  Sender: FDA-Public Use
  Company Number: NG-RANBAXY-2012R5-58453

PATIENT

DRUGS (1)
  1. ACETAMINOPHEN [Suspect]
     Indication: ANALGESIC THERAPY
     Dosage: UNK
     Route: 065

REACTIONS (1)
  - STEVENS-JOHNSON SYNDROME [None]
